FAERS Safety Report 20077225 (Version 1)
Quarter: 2021Q4

REPORT INFORMATION
  Report Type: Spontaneous
  Country: US (occurrence: None)
  Receive Date: 20211116
  Receipt Date: 20211116
  Transmission Date: 20220303
  Serious: Yes (Other)
  Sender: FDA-Public Use
  Company Number: None

PATIENT
  Age: 73 Year
  Sex: Male
  Weight: 63 kg

DRUGS (5)
  1. SUBOXONE [Suspect]
     Active Substance: BUPRENORPHINE HYDROCHLORIDE\NALOXONE HYDROCHLORIDE
     Indication: Back pain
     Dosage: OTHER QUANTITY : 30 30;?FREQUENCY : DAILY;?
     Route: 060
     Dates: start: 20130321, end: 20211116
  2. SUBOXONE [Concomitant]
     Active Substance: BUPRENORPHINE HYDROCHLORIDE\NALOXONE HYDROCHLORIDE
  3. EDARBYCLOR [Concomitant]
     Active Substance: AZILSARTAN KAMEDOXOMIL\CHLORTHALIDONE
  4. IBUPROFEN [Concomitant]
     Active Substance: IBUPROFEN
  5. one a day votamin [Concomitant]

REACTIONS (2)
  - Inability to afford medication [None]
  - Product availability issue [None]

NARRATIVE: CASE EVENT DATE: 20210914
